FAERS Safety Report 10795809 (Version 1)
Quarter: 2015Q1

REPORT INFORMATION
  Report Type: Spontaneous
  Country: DK (occurrence: DK)
  Receive Date: 20150215
  Receipt Date: 20150215
  Transmission Date: 20150721
  Serious: Yes (Hospitalization, Disabling)
  Sender: FDA-Public Use
  Company Number: DK-ROCHE-1536879

PATIENT
  Age: 66 Year
  Sex: Female

DRUGS (2)
  1. IRINOTECAN [Concomitant]
     Active Substance: IRINOTECAN
     Indication: BRAIN NEOPLASM
     Route: 065
     Dates: start: 20131021
  2. AVASTIN [Suspect]
     Active Substance: BEVACIZUMAB
     Indication: BRAIN NEOPLASM
     Route: 065
     Dates: start: 20131021, end: 20131104

REACTIONS (4)
  - Cognitive disorder [Not Recovered/Not Resolved]
  - Intracranial tumour haemorrhage [Unknown]
  - Fall [Unknown]
  - Hemiplegia [Not Recovered/Not Resolved]

NARRATIVE: CASE EVENT DATE: 20131104
